FAERS Safety Report 18190346 (Version 1)
Quarter: 2020Q3

REPORT INFORMATION
  Report Type: Report from Study
  Country: PK (occurrence: PK)
  Receive Date: 20200824
  Receipt Date: 20200824
  Transmission Date: 20201103
  Serious: Yes (Death)
  Sender: FDA-Public Use
  Company Number: NVSC2020PK233472

PATIENT
  Age: 83 Year
  Sex: Female

DRUGS (1)
  1. ONBREZ BREEZHALER [Suspect]
     Active Substance: INDACATEROL
     Indication: PRODUCT USED FOR UNKNOWN INDICATION
     Dosage: 0.300 MG, QD (EVERY NIGHT)
     Route: 055
     Dates: start: 20180306

REACTIONS (1)
  - Death [Fatal]

NARRATIVE: CASE EVENT DATE: 20200421
